FAERS Safety Report 6200003-0 (Version None)
Quarter: 2009Q2

REPORT INFORMATION
  Report Type: 
  Country: None (occurrence: None)
  Receive Date: 20090522
  Receipt Date: 20090514
  Transmission Date: 20091009
  Serious: Yes (Death, Hospitalization)
  Sender: FDA-Public Use
  Company Number: US-ABBOTT-09P-163-0573467-00

PATIENT
  Age: 19 Year
  Sex: Male

DRUGS (1)
  1. NEMBUTAL [Suspect]
     Indication: INTRACRANIAL PRESSURE INCREASED
     Route: 042

REACTIONS (1)
  - THERAPEUTIC AGENT TOXICITY [None]
